FAERS Safety Report 8469486 (Version 3)
Quarter: 2012Q4

REPORT INFORMATION
  Report Type: 
  Country: US (occurrence: US)
  Receive Date: 20120321
  Receipt Date: 20121005
  Transmission Date: 20130627
  Serious: Yes (Hospitalization)
  Sender: FDA-Public Use
  Company Number: US-BAYER-2012-026166

PATIENT
  Age: 30 Year
  Sex: Female

DRUGS (3)
  1. YASMIN [Suspect]
     Indication: CONTRACEPTION
     Dosage: UNK
     Dates: start: 2006, end: 2007
  2. YASMIN [Suspect]
     Indication: ACNE
  3. LEXAPRO [Concomitant]
     Indication: DEPRESSION
     Dosage: 20 mg, QD
     Route: 048

REACTIONS (3)
  - Cerebral infarction [None]
  - Injury [None]
  - Pain [None]
